FAERS Safety Report 5939896-0 (Version None)
Quarter: 2008Q4

REPORT INFORMATION
  Report Type: 
  Country: None (occurrence: None)
  Receive Date: 20081104
  Receipt Date: 20081029
  Transmission Date: 20090506
  Serious: Yes (Other)
  Sender: FDA-Public Use
  Company Number: US-ALLERGAN-0804493US

PATIENT
  Sex: Female
  Weight: 95.238 kg

DRUGS (7)
  1. BOTOX [Suspect]
     Indication: HYPERTONIC BLADDER
     Dosage: 240 UNITS, SINGLE
     Route: 030
     Dates: start: 20080414, end: 20080414
  2. HYDROCHLOROTHIAZIDE [Concomitant]
     Indication: HYPERTENSION
     Dosage: 25 MG, QD
     Route: 048
  3. MIDAZOLAM HCL [Concomitant]
     Indication: PREOPERATIVE CARE
     Dosage: 5 MG, UNK
  4. PROPOFOL [Concomitant]
     Indication: PREOPERATIVE CARE
  5. PROPOFOL [Concomitant]
     Indication: INTRAOPERATIVE CARE
  6. FENTANYL [Concomitant]
     Indication: PREOPERATIVE CARE
  7. FENTANYL [Concomitant]
     Indication: INTRAOPERATIVE CARE

REACTIONS (2)
  - NODAL ARRHYTHMIA [None]
  - SINUS BRADYCARDIA [None]
